FAERS Safety Report 16703150 (Version 1)
Quarter: 2019Q3

REPORT INFORMATION
  Report Type: Spontaneous
  Country: US (occurrence: US)
  Receive Date: 20190628
  Receipt Date: 20190628
  Transmission Date: 20191004
  Serious: Yes (Hospitalization, Disabling)
  Sender: FDA-Public Use
  Company Number: None

PATIENT
  Age: 68 Year
  Sex: Female
  Weight: 68.04 kg

DRUGS (5)
  1. VITAMIN [Suspect]
     Active Substance: VITAMINS
  2. PROLIA [Suspect]
     Active Substance: DENOSUMAB
     Indication: OSTEOPOROSIS
     Dosage: EVERY B MOS
     Dates: start: 2017, end: 2018
  3. MAGNESIUM [Concomitant]
     Active Substance: MAGNESIUM
  4. FORTEO [Suspect]
     Active Substance: TERIPARATIDE
     Indication: OSTEOPOROSIS
     Dates: start: 2014, end: 2016
  5. CALCIUM [Concomitant]
     Active Substance: CALCIUM

REACTIONS (4)
  - Femur fracture [None]
  - Fracture nonunion [None]
  - Surgical procedure repeated [None]
  - Fall [None]

NARRATIVE: CASE EVENT DATE: 20190612
